FAERS Safety Report 7098921-7 (Version None)
Quarter: 2010Q4

REPORT INFORMATION
  Report Type: 
  Country: None (occurrence: None)
  Receive Date: 20101112
  Receipt Date: 20101104
  Transmission Date: 20110411
  Serious: Yes (Hospitalization)
  Sender: FDA-Public Use
  Company Number: DE-ROCHE-740246

PATIENT
  Sex: Female
  Weight: 69 kg

DRUGS (1)
  1. CAPECITABINE [Suspect]
     Route: 048
     Dates: start: 20100615, end: 20101028

REACTIONS (3)
  - ASCITES [None]
  - BREAST CANCER RECURRENT [None]
  - MALIGNANT NEOPLASM PROGRESSION [None]
